FAERS Safety Report 6666605-2 (Version None)
Quarter: 2010Q2

REPORT INFORMATION
  Report Type: 
  Country: None (occurrence: None)
  Receive Date: 20100404
  Receipt Date: 20100322
  Transmission Date: 20101027
  Serious: Yes (Other)
  Sender: FDA-Public Use
  Company Number: US-BRISTOL-MYERS SQUIBB COMPANY-15047673

PATIENT
  Age: 78 Year
  Sex: Female

DRUGS (3)
  1. CISPLATIN [Suspect]
     Indication: THYROID CANCER
  2. DOXORUBICIN HCL [Suspect]
     Indication: THYROID CANCER
  3. RADIATION THERAPY [Suspect]
     Indication: THYROID CANCER

REACTIONS (3)
  - NAUSEA [None]
  - STRESS CARDIOMYOPATHY [None]
  - VOMITING [None]
